FAERS Safety Report 16816476 (Version 1)
Quarter: 2019Q3

REPORT INFORMATION
  Report Type: Report from Study
  Country: DE (occurrence: DE)
  Receive Date: 20190917
  Receipt Date: 20190917
  Transmission Date: 20191005
  Serious: Yes (Other)
  Sender: FDA-Public Use
  Company Number: DE-ROCHE-2400693

PATIENT
  Age: 57 Year
  Sex: Female
  Weight: 85 kg

DRUGS (11)
  1. URBASON [METHYLPREDNISOLONE] [Concomitant]
     Active Substance: METHYLPREDNISOLONE
     Route: 042
     Dates: start: 20190215, end: 20190215
  2. VENLAFAXINE [Concomitant]
     Active Substance: VENLAFAXINE HYDROCHLORIDE
     Indication: DEPRESSION
     Route: 048
  3. URBASON [METHYLPREDNISOLONE] [Concomitant]
     Active Substance: METHYLPREDNISOLONE
     Route: 042
     Dates: start: 20190301, end: 20190301
  4. METOPROLOL. [Concomitant]
     Active Substance: METOPROLOL
     Indication: HYPERTONIA
     Route: 048
  5. URSOFALK [Concomitant]
     Active Substance: URSODIOL
     Indication: CROHN^S DISEASE
     Route: 048
  6. PARACETAMOL [Concomitant]
     Active Substance: ACETAMINOPHEN
     Route: 042
     Dates: start: 20190301, end: 20190301
  7. OCRELIZUMAB. [Suspect]
     Active Substance: OCRELIZUMAB
     Indication: MULTIPLE SCLEROSIS
     Dosage: ON 01/MAR/2019, MOST RECENT DOSE
     Route: 042
     Dates: start: 20190215
  8. VOMEX [Concomitant]
     Active Substance: DIMENHYDRINATE
     Route: 042
     Dates: start: 20190215, end: 20190215
  9. VOMEX [Concomitant]
     Active Substance: DIMENHYDRINATE
     Route: 042
     Dates: start: 20190301, end: 20190301
  10. PARACETAMOL [Concomitant]
     Active Substance: ACETAMINOPHEN
     Route: 042
     Dates: start: 20190215, end: 20190215
  11. LISINOPRIL. [Concomitant]
     Active Substance: LISINOPRIL
     Indication: HYPERTONIA
     Route: 048

REACTIONS (3)
  - Crohn^s disease [Recovered/Resolved]
  - Rash macular [Recovered/Resolved]
  - Skin mass [Recovered/Resolved with Sequelae]

NARRATIVE: CASE EVENT DATE: 201903
